FAERS Safety Report 7877941-6 (Version None)
Quarter: 2011Q4

REPORT INFORMATION
  Report Type: 
  Country: None (occurrence: None)
  Receive Date: 20111031
  Receipt Date: 20111024
  Transmission Date: 20120403
  Serious: Yes (Hospitalization)
  Sender: FDA-Public Use
  Company Number: US-ABBOTT-11P-163-0867639-00

PATIENT
  Sex: Male
  Weight: 106.69 kg

DRUGS (8)
  1. METHOTREXATE [Concomitant]
     Indication: RHEUMATOID ARTHRITIS
  2. FOLIC ACID [Concomitant]
     Indication: RHEUMATOID ARTHRITIS
  3. TRAMADOL HCL [Concomitant]
     Indication: RHEUMATOID ARTHRITIS
  4. MOBIC [Concomitant]
     Indication: RHEUMATOID ARTHRITIS
  5. HUMIRA [Suspect]
     Indication: RHEUMATOID ARTHRITIS
     Dates: start: 20100201, end: 20110601
  6. LISINOPRIL [Concomitant]
     Indication: BLOOD CHOLESTEROL INCREASED
  7. PREDNISONE [Concomitant]
     Indication: RHEUMATOID ARTHRITIS
  8. PLAQUENIL [Concomitant]
     Indication: RHEUMATOID ARTHRITIS

REACTIONS (6)
  - DEHYDRATION [None]
  - PNEUMONIA [None]
  - FEAR OF DISEASE [None]
  - FATIGUE [None]
  - OROPHARYNGEAL PAIN [None]
  - NASAL DISCOMFORT [None]
